FAERS Safety Report 8719360 (Version 2)
Quarter: 2012Q4

REPORT INFORMATION
  Report Type: 
  Country: US (occurrence: US)
  Receive Date: 20120813
  Receipt Date: 20120929
  Transmission Date: 20130627
  Serious: Yes (Other)
  Sender: FDA-Public Use
  Company Number: US-009507513-1208USA003551

PATIENT
  Sex: Male

DRUGS (5)
  1. INTRONA [Suspect]
     Indication: HEPATITIS C
     Dosage: UNK UNK, q3w
     Dates: start: 20010928, end: 20020927
  2. REBETOL [Suspect]
     Indication: HEPATITIS C
     Dosage: UNK
     Dates: start: 20010928, end: 20020927
  3. REBETOL [Suspect]
     Dosage: UNK
     Dates: start: 20120728
  4. VICTRELIS [Suspect]
     Indication: HEPATITIS C
     Dosage: UNK
     Route: 048
     Dates: start: 20120826
  5. PEGASYS [Suspect]
     Indication: HEPATITIS C
     Dosage: UNK
     Dates: start: 20120728

REACTIONS (15)
  - Dehydration [Unknown]
  - Blood potassium decreased [Unknown]
  - Ulcer [Unknown]
  - Pain in extremity [Unknown]
  - Somnolence [Unknown]
  - Diarrhoea [Unknown]
  - Drug ineffective [Unknown]
  - Fatigue [Unknown]
  - Headache [Unknown]
  - Nausea [Unknown]
  - Vomiting [Recovered/Resolved]
  - Dysgeusia [Not Recovered/Not Resolved]
  - Injection site pain [None]
  - Injection site pain [None]
  - Ulcer haemorrhage [None]
